FAERS Safety Report 9460922 (Version 1)
Quarter: 2013Q3

REPORT INFORMATION
  Report Type: Spontaneous
  Country: US (occurrence: US)
  Receive Date: 20130816
  Receipt Date: 20130816
  Transmission Date: 20140515
  Serious: Yes (Hospitalization)
  Sender: FDA-Public Use
  Company Number: US-BIOGENIDEC-2013BI074005

PATIENT
  Sex: Female

DRUGS (3)
  1. AVONEX [Suspect]
     Indication: PRODUCT USED FOR UNKNOWN INDICATION
     Route: 030
     Dates: start: 2010, end: 20130119
  2. LITHIUM [Concomitant]
     Indication: BIPOLAR DISORDER
     Dates: end: 201301
  3. DITROPAN [Concomitant]
     Indication: BIPOLAR DISORDER
     Dates: start: 201301

REACTIONS (2)
  - Bipolar disorder [Unknown]
  - Homicidal ideation [Unknown]
